FAERS Safety Report 6680120-1 (Version None)
Quarter: 2010Q2

REPORT INFORMATION
  Report Type: 
  Country: None (occurrence: None)
  Receive Date: 20100409
  Receipt Date: 20100304
  Transmission Date: 20101027
  Serious: Yes (Other)
  Sender: FDA-Public Use
  Company Number: 1000011496

PATIENT
  Age: 40 Year
  Sex: Female

DRUGS (4)
  1. ESCITALOPRAM [Suspect]
     Indication: DEPRESSION
     Dosage: 15 MG (15 MG,1 IN 1 D), ORAL
     Route: 048
     Dates: start: 20070501
  2. ESCITALOPRAM [Suspect]
     Indication: ANXIETY
     Dosage: ORAL
  3. ESCITALOPRAM [Suspect]
     Indication: DEPRESSION
     Dosage: ORAL
  4. RIVOTRIL [Suspect]

REACTIONS (8)
  - ARRHYTHMIA [None]
  - CHEST PAIN [None]
  - DIZZINESS [None]
  - HEADACHE [None]
  - HYPERHIDROSIS [None]
  - HYPERPHAGIA [None]
  - SUICIDAL IDEATION [None]
  - WEIGHT INCREASED [None]
